FAERS Safety Report 5151273-1 (Version None)
Quarter: 2006Q4

REPORT INFORMATION
  Report Type: 
  Country: None (occurrence: None)
  Receive Date: 20061115
  Receipt Date: 20050817
  Transmission Date: 20070319
  Serious: Yes (Disabling, Other)
  Sender: FDA-Public Use
  Company Number: US-AVENTIS-200516260US

PATIENT
  Sex: Female
  Weight: 52.2 kg

DRUGS (5)
  1. KETEK [Suspect]
     Indication: ARTHROPOD-BORNE DISEASE
     Route: 048
     Dates: start: 20041228, end: 20050730
  2. TINDAMAX [Suspect]
     Indication: ARTHROPOD-BORNE DISEASE
     Dosage: DOSE: UNKNOWN
     Dates: start: 20041228, end: 20050729
  3. CLIDINIUM [Suspect]
     Dosage: DOSE: UNKNOWN
  4. DORYX [Concomitant]
     Dosage: DOSE: UNK
  5. THYROID TAB [Concomitant]
     Dosage: DOSE: UNK

REACTIONS (7)
  - ACTIVITIES OF DAILY LIVING IMPAIRED [None]
  - COLOUR BLINDNESS [None]
  - DRUG TOXICITY [None]
  - PHOTOPSIA [None]
  - RETINAL DISORDER [None]
  - VISUAL DISTURBANCE [None]
  - VISUAL PATHWAY DISORDER [None]
